FAERS Safety Report 4272844-0 (Version None)
Quarter: 2004Q1

REPORT INFORMATION
  Report Type: 
  Country: None (occurrence: None)
  Receive Date: 20040114
  Receipt Date: 20040106
  Transmission Date: 20041129
  Serious: Yes (Other)
  Sender: FDA-Public Use
  Company Number: 2004001234

PATIENT
  Sex: Female

DRUGS (4)
  1. NEURONTIN [Suspect]
     Indication: TRIGEMINAL NEURALGIA
     Dosage: ORAL
     Route: 048
     Dates: start: 20030101
  2. ALL OTHER THERAPEUTIC PRODUCTS [Concomitant]
  3. MULTIVITAMIN [Concomitant]
  4. CONJUGATED ESTROGENS [Concomitant]

REACTIONS (3)
  - PRURITUS GENERALISED [None]
  - RASH [None]
  - SKIN DISORDER [None]
